FAERS Safety Report 19038895 (Version 1)
Quarter: 2021Q1

REPORT INFORMATION
  Report Type: Spontaneous
  Country: NL (occurrence: NL)
  Receive Date: 20210322
  Receipt Date: 20210322
  Transmission Date: 20210420
  Serious: Yes (Hospitalization)
  Sender: FDA-Public Use
  Company Number: NL-TEVA-2021-NL-1892297

PATIENT
  Sex: Male
  Weight: 95 kg

DRUGS (6)
  1. SOTALOL TABLET 40MG / BRAND NAME NOT SPECIFIED [Suspect]
     Active Substance: SOTALOL
     Indication: ATRIAL FIBRILLATION
     Dosage: 80 MILLIGRAM DAILY; 2 DD 1THERAPY END DATE :ASKU
     Dates: start: 20190916
  2. IRBESARTAN/HYDROCHLOORTHIAZIDE TABLET 150/12,5MG / COAPROVEL TABLET FI [Concomitant]
     Dosage: 150/12,5 MG (MILLIGRAM):FILM COVER:THERAPY START DATE:ASKED BUT UNKNOWN:THERAPY END DATE :ASKED BUT
  3. ESOMEPRAZOL CAPSULE MSR 40MG / BRAND NAME NOT SPECIFIED [Suspect]
     Active Substance: ESOMEPRAZOLE
     Indication: PROPHYLAXIS
     Dosage: 40 MILLIGRAM DAILY; 1 DD 1
     Dates: start: 20190916, end: 20210223
  4. DABIGATRAN ETEXILAAT CAPSULE 150MG / PRADAXA CAPSULE 150MG [Concomitant]
     Dosage: 150 MG (MILLIGRAM)THERAPY START DATE:ASKED BUT UNKNOWN:THERAPY END DATE :ASKED BUT UNKNOWN
  5. PREDNISOLON CAPSULE 30MG / BRAND NAME NOT SPECIFIED [Concomitant]
     Dosage: 30 MG (MILLIGRAM)THERAPY START DATE:ASKED BUT UNKNOWN:THERAPY END DATE :ASKED BUT UNKNOWN
  6. SIMVASTATINE TABLET FO 40MG / BRAND NAME NOT SPECIFIED [Concomitant]
     Active Substance: SIMVASTATIN
     Dosage: 40 MG (MILLIGRAM)THERAPY START DATE:ASKED BUT UNKNOWN:THERAPY END DATE :ASKED BUT UNKNOWN

REACTIONS (4)
  - Hypocalcaemia [Recovering/Resolving]
  - Hypokalaemia [Recovering/Resolving]
  - Diarrhoea [Recovering/Resolving]
  - Hypomagnesaemia [Recovering/Resolving]
